FAERS Safety Report 6313926-9 (Version None)
Quarter: 2009Q3

REPORT INFORMATION
  Report Type: 
  Country: None (occurrence: None)
  Receive Date: 20090818
  Receipt Date: 20090805
  Transmission Date: 20100115
  Serious: Yes (Hospitalization, Other)
  Sender: FDA-Public Use
  Company Number: PHHY2009BR34133

PATIENT
  Sex: Female

DRUGS (3)
  1. MYFORTIC [Suspect]
     Indication: RENAL TRANSPLANT
     Dosage: 1 TABLET
     Dates: start: 20090710
  2. MYFORTIC [Suspect]
     Dosage: 1 TABLET
     Dates: start: 20090711
  3. TACROLIMUS [Concomitant]
     Dosage: 1 PACKAGE

REACTIONS (17)
  - CIRCUMSTANCE OR INFORMATION CAPABLE OF LEADING TO MEDICATION ERROR [None]
  - EYELID OEDEMA [None]
  - GRAFT COMPLICATION [None]
  - HEART RATE DECREASED [None]
  - HYPOAESTHESIA [None]
  - ILLUSION [None]
  - LABORATORY TEST INTERFERENCE [None]
  - MEMORY IMPAIRMENT [None]
  - MUSCLE DISORDER [None]
  - MUSCULAR WEAKNESS [None]
  - NERVOUS SYSTEM DISORDER [None]
  - OLIGURIA [None]
  - PRODUCT TAMPERING [None]
  - SENSORY DISTURBANCE [None]
  - SOMNOLENCE [None]
  - SYNCOPE [None]
  - WEIGHT DECREASED [None]
